FAERS Safety Report 8894852 (Version 1)
Quarter: 2012Q4

REPORT INFORMATION
  Report Type: 
  Country: CA (occurrence: CA)
  Receive Date: 20121107
  Receipt Date: 20121107
  Transmission Date: 20130627
  Serious: Yes (Hospitalization, Other)
  Sender: FDA-Public Use
  Company Number: PHMT2007CA01325

PATIENT
  Sex: Female

DRUGS (3)
  1. SANDOSTATIN LAR [Suspect]
     Indication: ACROMEGALY
     Dosage: 20 mg every 4 weeks
     Route: 030
     Dates: start: 20070410, end: 20070508
  2. ADALAT XL [Concomitant]
     Dates: start: 20070508
  3. TENORMIN [Concomitant]

REACTIONS (5)
  - Pituitary tumour [Recovered/Resolved]
  - Blood pressure increased [Unknown]
  - Nervousness [Unknown]
  - Swelling face [Recovering/Resolving]
  - Arthralgia [Unknown]
